FAERS Safety Report 12294980 (Version 1)
Quarter: 2016Q2

REPORT INFORMATION
  Report Type: Spontaneous
  Country: US (occurrence: US)
  Receive Date: 20160422
  Receipt Date: 20160422
  Transmission Date: 20160815
  Serious: No
  Sender: FDA-Public Use
  Company Number: US-BAYER-2016-077378

PATIENT
  Sex: Female

DRUGS (3)
  1. AMOXICILLIN. [Concomitant]
     Active Substance: AMOXICILLIN
  2. CLARITIN [Suspect]
     Active Substance: LORATADINE
     Indication: EAR SWELLING
  3. CLARITIN [Suspect]
     Active Substance: LORATADINE
     Indication: PHARYNGEAL OEDEMA

REACTIONS (1)
  - Circumstance or information capable of leading to medication error [None]
